FAERS Safety Report 25541218 (Version 5)
Quarter: 2025Q3

REPORT INFORMATION
  Report Type: Report from Study
  Country: CA (occurrence: CA)
  Receive Date: 20250710
  Receipt Date: 20250910
  Transmission Date: 20251020
  Serious: Yes (Hospitalization, Other)
  Sender: TAKEDA
  Company Number: CA-TAKEDA-2025TUS061572

PATIENT
  Sex: Male

DRUGS (3)
  1. VEDOLIZUMAB [Suspect]
     Active Substance: VEDOLIZUMAB
     Indication: Colitis ulcerative
     Dates: start: 20250522, end: 20250812
  2. VANCOMYCIN [Concomitant]
     Active Substance: VANCOMYCIN
  3. PREDNISONE [Concomitant]
     Active Substance: PREDNISONE

REACTIONS (6)
  - Colitis ulcerative [Not Recovered/Not Resolved]
  - Haematochezia [Unknown]
  - Mental impairment [Unknown]
  - Off label use [Unknown]
  - Headache [Unknown]
  - Fatigue [Unknown]
